FAERS Safety Report 8060461-6 (Version None)
Quarter: 2012Q1

REPORT INFORMATION
  Report Type: 
  Country: None (occurrence: None)
  Receive Date: 20120120
  Receipt Date: 20120116
  Transmission Date: 20120608
  Serious: Yes (Other)
  Sender: FDA-Public Use
  Company Number: IT-GLAXOSMITHKLINE-B0776366A

PATIENT
  Age: 60 Year
  Sex: Female

DRUGS (2)
  1. LAMICTAL [Suspect]
     Indication: POST-TRAUMATIC EPILEPSY
     Dosage: 50MG TWICE PER DAY
     Route: 065
     Dates: start: 20090101
  2. SINTROM [Suspect]
     Indication: PRODUCT USED FOR UNKNOWN INDICATION
     Route: 065

REACTIONS (6)
  - VISUAL IMPAIRMENT [None]
  - ERYTHEMA [None]
  - DRY MOUTH [None]
  - PRURITUS [None]
  - VISUAL ACUITY REDUCED [None]
  - RETINAL DYSTROPHY [None]
